FAERS Safety Report 12275789 (Version 1)
Quarter: 2016Q2

REPORT INFORMATION
  Report Type: Spontaneous
  Country: US (occurrence: US)
  Receive Date: 20160418
  Receipt Date: 20160418
  Transmission Date: 20160815
  Serious: No
  Sender: FDA-Public Use
  Company Number: US-THROMBOGENICS INC-SPO-2016-2109

PATIENT
  Age: 77 Year
  Sex: Male

DRUGS (1)
  1. JETREA [Suspect]
     Active Substance: OCRIPLASMIN
     Indication: VITREOUS ADHESIONS
     Dosage: 0.125 MG, ONE TIME DOSE
     Route: 031
     Dates: start: 20160120, end: 20160120

REACTIONS (1)
  - Photopsia [Recovered/Resolved]

NARRATIVE: CASE EVENT DATE: 20160120
